FAERS Safety Report 5070434-3 (Version None)
Quarter: 2006Q3

REPORT INFORMATION
  Report Type: 
  Country: None (occurrence: None)
  Receive Date: 20060714
  Receipt Date: 20060417
  Transmission Date: 20061208
  Serious: No
  Sender: FDA-Public Use
  Company Number: 2006SP001717

PATIENT
  Age: 66 Year
  Sex: Female

DRUGS (3)
  1. LUNESTA [Suspect]
     Dosage: 2 MG;ORAL
     Route: 048
     Dates: start: 20060401
  2. KLONOPIN [Concomitant]
  3. PROZAC [Concomitant]

REACTIONS (2)
  - DRUG INEFFECTIVE [None]
  - MIDDLE INSOMNIA [None]
